FAERS Safety Report 13055953 (Version 1)
Quarter: 2016Q4

REPORT INFORMATION
  Report Type: Spontaneous
  Country: AU (occurrence: AU)
  Receive Date: 20161222
  Receipt Date: 20161222
  Transmission Date: 20170207
  Serious: Yes (Other)
  Sender: FDA-Public Use
  Company Number: AU-PFIZER INC-2016531043

PATIENT
  Age: 71 Year
  Sex: Female

DRUGS (9)
  1. METHOTREXATE. [Interacting]
     Active Substance: METHOTREXATE
     Dosage: 7.5 MG, IN THREE DIVIDED ORAL DOSES 12 HOURS APART
     Route: 048
  2. METHOTREXATE. [Interacting]
     Active Substance: METHOTREXATE
     Dosage: 65 MG, UNK (TOTAL DOSE)
     Route: 048
  3. CHLORAZEPATE [Interacting]
     Active Substance: CLORAZEPATE DIPOTASSIUM
     Dosage: 25 MG, 1X/DAY (NOCTE)
  4. METHOTREXATE. [Suspect]
     Active Substance: METHOTREXATE
     Indication: RHEUMATOID ARTHRITIS
     Dosage: 5-7.5-50 MG/WEEK
     Route: 048
  5. CIMETIDINE [Interacting]
     Active Substance: CIMETIDINE
     Dosage: 400 MG, DAILY
  6. GOLD SODIUM THIOMALATE [Interacting]
     Active Substance: GOLD SODIUM THIOMALATE
     Dosage: 50 MG, WEEKLY
     Route: 030
  7. SULINDAC. [Interacting]
     Active Substance: SULINDAC
     Dosage: 400 MG, DAILY
  8. METHOTREXATE. [Interacting]
     Active Substance: METHOTREXATE
     Dosage: 5 MG, UNK
     Route: 048
  9. METHOTREXATE. [Interacting]
     Active Substance: METHOTREXATE
     Dosage: 50 MG, UNK
     Route: 048

REACTIONS (2)
  - Pancytopenia [Recovered/Resolved]
  - Drug interaction [Recovered/Resolved]
